FAERS Safety Report 11983818 (Version 1)
Quarter: 2016Q1

REPORT INFORMATION
  Report Type: Spontaneous
  Country: DE (occurrence: DE)
  Receive Date: 20160201
  Receipt Date: 20160201
  Transmission Date: 20160526
  Serious: Yes (Other)
  Sender: FDA-Public Use
  Company Number: DE-SA-2016SA015251

PATIENT
  Age: 90 Year
  Sex: Male

DRUGS (1)
  1. CLEXANE [Suspect]
     Active Substance: ENOXAPARIN SODIUM
     Indication: CEREBRAL THROMBOSIS
     Route: 065
     Dates: start: 2015

REACTIONS (1)
  - Transient ischaemic attack [Unknown]
